FAERS Safety Report 20249749 (Version 1)
Quarter: 2021Q4

REPORT INFORMATION
  Report Type: Spontaneous
  Country: CO (occurrence: CO)
  Receive Date: 20211229
  Receipt Date: 20211229
  Transmission Date: 20220303
  Serious: Yes (Other)
  Sender: FDA-Public Use
  Company Number: CO-PFIZER INC-202101835801

PATIENT
  Sex: Female

DRUGS (2)
  1. XELJANZ XR [Suspect]
     Active Substance: TOFACITINIB CITRATE
     Indication: Rheumatoid arthritis
     Dosage: 11 MG, UNSPECIFIED FREQUENCY
     Route: 048
     Dates: start: 202112
  2. CHLOROQUINE [Concomitant]
     Active Substance: CHLOROQUINE

REACTIONS (2)
  - Cholelithiasis [Unknown]
  - Ear congestion [Not Recovered/Not Resolved]
